FAERS Safety Report 6144689-8 (Version None)
Quarter: 2009Q2

REPORT INFORMATION
  Report Type: 
  Country: None (occurrence: None)
  Receive Date: 20090406
  Receipt Date: 20090401
  Transmission Date: 20091009
  Serious: Yes (Hospitalization)
  Sender: FDA-Public Use
  Company Number: B0565411A

PATIENT
  Sex: Female
  Weight: 50 kg

DRUGS (6)
  1. VALTREX [Suspect]
     Indication: HERPES ZOSTER
     Route: 048
     Dates: start: 20090306, end: 20090309
  2. LOXONIN [Concomitant]
     Indication: PAIN
     Dosage: 3U PER DAY
     Route: 048
     Dates: start: 20090306, end: 20090309
  3. METILDIGOXIN [Concomitant]
     Dosage: 5U PER DAY
     Route: 048
     Dates: end: 20090309
  4. ASPIRIN [Concomitant]
     Dosage: 100MG PER DAY
     Route: 048
     Dates: end: 20090309
  5. MEVALOTIN [Concomitant]
     Dosage: 1U PER DAY
     Route: 048
     Dates: end: 20090309
  6. ALLEGRA [Concomitant]
     Dosage: 2U PER DAY
     Route: 048
     Dates: end: 20090309

REACTIONS (5)
  - BLOOD CREATININE INCREASED [None]
  - FAECAL INCONTINENCE [None]
  - MENTAL DISORDER [None]
  - MOBILITY DECREASED [None]
  - SOMNOLENCE [None]
